FAERS Safety Report 25878671 (Version 2)
Quarter: 2025Q4

REPORT INFORMATION
  Report Type: Spontaneous
  Country: JP (occurrence: JP)
  Receive Date: 20251003
  Receipt Date: 20251124
  Transmission Date: 20260118
  Serious: Yes (Hospitalization)
  Sender: ORGANON
  Company Number: JP-JT-EVA202504057ORGANON

PATIENT
  Age: 84 Year
  Sex: Female

DRUGS (2)
  1. VTAMA [Suspect]
     Active Substance: TAPINAROF
     Indication: Psoriasis
     Dosage: UNK
  2. VTAMA [Suspect]
     Active Substance: TAPINAROF
     Dosage: UNK

REACTIONS (4)
  - Dermatitis contact [Recovered/Resolved]
  - Pyrexia [Recovered/Resolved]
  - Dermatitis contact [Recovered/Resolved]
  - Pyrexia [Recovered/Resolved]
